FAERS Safety Report 9637888 (Version 1)
Quarter: 2013Q4

REPORT INFORMATION
  Report Type: Spontaneous
  Country: US (occurrence: None)
  Receive Date: 20131018
  Receipt Date: 20131018
  Transmission Date: 20140711
  Serious: Yes (Other)
  Sender: FDA-Public Use
  Company Number: 2013P1020127

PATIENT
  Age: 15 Year
  Sex: Male

DRUGS (7)
  1. METHYLPREDNISOLONE [Suspect]
  2. DOXYCYCLINE [Concomitant]
  3. IBUPROFEN [Concomitant]
  4. ACETAMINOPHEN [Concomitant]
  5. DIPHENHYDRAMINE [Concomitant]
  6. VANCOMYCIN [Concomitant]
  7. CEFTRIAXONE [Concomitant]

REACTIONS (6)
  - Rash morbilliform [None]
  - Drug reaction with eosinophilia and systemic symptoms [None]
  - Tachycardia [None]
  - Human herpesvirus 6 infection [None]
  - Blood sodium decreased [None]
  - Hepatitis acute [None]
